FAERS Safety Report 4722011-9 (Version None)
Quarter: 2005Q3

REPORT INFORMATION
  Report Type: 
  Country: None (occurrence: None)
  Receive Date: 20050722
  Receipt Date: 20050720
  Transmission Date: 20060218
  Serious: Yes (Death, Hospitalization)
  Sender: FDA-Public Use
  Company Number: US-SANOFI-SYNTHELABO-F03200500102

PATIENT
  Age: 82 Year
  Sex: Female

DRUGS (4)
  1. ELOXATIN [Suspect]
     Indication: COLORECTAL CANCER
     Route: 042
     Dates: start: 20050629, end: 20050629
  2. CETUXIMAB [Suspect]
     Indication: COLORECTAL CANCER
     Route: 042
     Dates: start: 20050629, end: 20050629
  3. FLUOROURACIL [Suspect]
     Dosage: 400 MG/M2 BOLUS ON DAY 1 FOLLOWED BY 2400 MG/M2 CONTINUOUS INFUSION OVER 46 HOURS
     Route: 042
     Dates: start: 20050629, end: 20050701
  4. LEUCOVORIN [Suspect]
     Route: 042
     Dates: start: 20050629, end: 20050629

REACTIONS (8)
  - DEHYDRATION [None]
  - DIARRHOEA [None]
  - FEBRILE NEUTROPENIA [None]
  - HYPOKALAEMIA [None]
  - HYPOMAGNESAEMIA [None]
  - HYPOPHOSPHATAEMIA [None]
  - LOSS OF CONSCIOUSNESS [None]
  - PULSE ABSENT [None]
